FAERS Safety Report 7742639-1 (Version None)
Quarter: 2011Q3

REPORT INFORMATION
  Report Type: 
  Country: None (occurrence: None)
  Receive Date: 20110912
  Receipt Date: 20110902
  Transmission Date: 20111222
  Serious: Yes (Hospitalization)
  Sender: FDA-Public Use
  Company Number: DE-TEVA-299786GER

PATIENT
  Age: 72 Year
  Sex: Male
  Weight: 81 kg

DRUGS (6)
  1. DEXAMETHASONE [Suspect]
     Indication: MULTIPLE MYELOMA
     Dosage: 40 MILLIGRAM;
     Dates: start: 20081008, end: 20091224
  2. LENALIDOMIDE [Suspect]
     Route: 048
     Dates: start: 20100119
  3. ACETYLSALICYLIC ACID SRT [Concomitant]
     Indication: THROMBOSIS PROPHYLAXIS
     Dates: end: 20091229
  4. LENALIDOMIDE [Suspect]
     Indication: MULTIPLE MYELOMA
     Dosage: 25 MILLIGRAM;
     Route: 048
     Dates: start: 20091008, end: 20091226
  5. DEXAMETHASONE [Suspect]
     Dates: start: 20100119
  6. ENOXAPARIN SODIUM [Concomitant]
     Indication: THROMBOSIS PROPHYLAXIS
     Dates: start: 20091229

REACTIONS (1)
  - PNEUMONIA [None]
